FAERS Safety Report 9714315 (Version 2)
Quarter: 2013Q4

REPORT INFORMATION
  Report Type: Spontaneous
  Country: US (occurrence: US)
  Receive Date: 20131126
  Receipt Date: 20131126
  Transmission Date: 20140711
  Serious: No
  Sender: FDA-Public Use
  Company Number: US-GALDERMA-US12415772

PATIENT
  Age: 14 Year
  Sex: Male

DRUGS (7)
  1. CAPEX SHAMPOO (FLUOCINOLONE ACETONIDE) TOPICAL SHAMPOO, 0.01% [Suspect]
     Indication: SEBORRHOEIC DERMATITIS
     Route: 061
     Dates: start: 2010, end: 20121122
  2. CAPEX SHAMPOO (FLUOCINOLONE ACETONIDE) TOPICAL SHAMPOO, 0.01% [Suspect]
     Indication: DANDRUFF
     Route: 061
     Dates: start: 2012
  3. PROZAC [Concomitant]
     Route: 048
     Dates: start: 2008
  4. BUSPAR [Concomitant]
     Route: 048
     Dates: start: 2008
  5. RISPERIDONE [Concomitant]
     Route: 048
     Dates: start: 2008
  6. BENZTROPINE [Concomitant]
     Route: 048
     Dates: start: 2008
  7. INTUNIV [Concomitant]
     Route: 048
     Dates: start: 2011

REACTIONS (1)
  - Condition aggravated [Recovered/Resolved]
